FAERS Safety Report 24966888 (Version 3)
Quarter: 2025Q1

REPORT INFORMATION
  Report Type: Spontaneous
  Country: FR (occurrence: FR)
  Receive Date: 20250213
  Receipt Date: 20250304
  Transmission Date: 20250409
  Serious: Yes (Life-Threatening, Other)
  Sender: PFIZER
  Company Number: None

PATIENT
  Age: 71 Year
  Sex: Male
  Weight: 88 kg

DRUGS (35)
  1. PANTOPRAZOLE [Suspect]
     Active Substance: PANTOPRAZOLE
     Indication: Prophylaxis against gastrointestinal ulcer
     Dosage: 40 GRAM, QD
     Route: 042
     Dates: end: 20250113
  2. PANTOPRAZOLE [Suspect]
     Active Substance: PANTOPRAZOLE
     Dosage: UNK, QD
  3. PIPERACILLIN SODIUM\TAZOBACTAM SODIUM [Suspect]
     Active Substance: PIPERACILLIN SODIUM\TAZOBACTAM SODIUM
     Indication: Lung disorder
     Dosage: 12 GRAM, QD
     Route: 042
     Dates: start: 20250101, end: 20250102
  4. LINEZOLID [Suspect]
     Active Substance: LINEZOLID
     Indication: Lung disorder
     Dosage: 6 GRAM, QD
     Route: 042
     Dates: start: 20250103, end: 20250104
  5. MEROPENEM [Suspect]
     Active Substance: MEROPENEM
     Indication: Lung disorder
     Route: 042
     Dates: start: 20250103, end: 20250111
  6. MEROPENEM [Suspect]
     Active Substance: MEROPENEM
     Indication: Pneumonia pneumococcal
  7. OCTREOTIDE ACETATE [Suspect]
     Active Substance: OCTREOTIDE ACETATE
     Indication: Tumour of ampulla of Vater
     Dosage: 100 MICROGRAM, Q8HR
     Route: 058
     Dates: start: 20241230, end: 20250109
  8. OCTREOTIDE ACETATE [Suspect]
     Active Substance: OCTREOTIDE ACETATE
     Indication: Antibiotic prophylaxis
  9. PIPERACILLIN SODIUM\TAZOBACTAM SODIUM [Suspect]
     Active Substance: PIPERACILLIN SODIUM\TAZOBACTAM SODIUM
     Indication: Antibiotic prophylaxis
     Dosage: 12 GRAM, QD
     Route: 042
     Dates: start: 20250101, end: 20250102
  10. PIPERACILLIN SODIUM\TAZOBACTAM SODIUM [Suspect]
     Active Substance: PIPERACILLIN SODIUM\TAZOBACTAM SODIUM
     Indication: Lung disorder
  11. PROPOFOL [Suspect]
     Active Substance: PROPOFOL
     Indication: Sedation
     Route: 042
     Dates: start: 20250103, end: 20250113
  12. ACETAMINOPHEN [Suspect]
     Active Substance: ACETAMINOPHEN
     Indication: Pain
     Route: 042
     Dates: start: 20241230, end: 20250105
  13. OXYCODONE [Suspect]
     Active Substance: OXYCODONE
     Indication: Pain
     Dosage: 5 MILLIGRAM, Q6HR
     Route: 042
     Dates: start: 20250102, end: 20250103
  14. NEFOPAM HYDROCHLORIDE [Suspect]
     Active Substance: NEFOPAM HYDROCHLORIDE
     Indication: Pain
     Dosage: 100 MILLIGRAM, QD
     Route: 042
     Dates: start: 20241231, end: 20250101
  15. MICAFUNGIN [Suspect]
     Active Substance: MICAFUNGIN SODIUM
     Indication: Lung disorder
     Dosage: 100 MILLIGRAM, QD
     Route: 042
     Dates: start: 20250103, end: 20250104
  16. DIAZEPAM [Suspect]
     Active Substance: DIAZEPAM
     Indication: Anxiety
     Dosage: 40 MILLIGRAM, QD
     Route: 042
     Dates: start: 20250103, end: 20250104
  17. ENOXAPARIN SODIUM [Suspect]
     Active Substance: ENOXAPARIN SODIUM
     Indication: Thrombosis prophylaxis
     Dosage: 0.4 MILLILITER, QD
     Route: 058
     Dates: start: 20241230, end: 20250109
  18. HEPARIN SODIUM [Suspect]
     Active Substance: HEPARIN SODIUM
     Indication: Thrombosis prophylaxis
     Route: 042
     Dates: start: 20250102, end: 20250115
  19. INSULIN PORK\INSULIN PURIFIED PORK [Suspect]
     Active Substance: INSULIN PORK\INSULIN PURIFIED PORK
     Indication: Type 2 diabetes mellitus
     Route: 042
     Dates: start: 20241230
  20. ERYTHROMYCIN [Suspect]
     Active Substance: ERYTHROMYCIN
     Indication: Impaired gastric emptying
     Dosage: 200 MG, EVERY 4 HRS
     Route: 042
     Dates: start: 20241230, end: 20250103
  21. MIDAZOLAM HYDROCHLORIDE [Suspect]
     Active Substance: MIDAZOLAM HYDROCHLORIDE
     Indication: Sedation
     Route: 065
     Dates: start: 20250104, end: 20250109
  22. MIDAZOLAM HYDROCHLORIDE [Suspect]
     Active Substance: MIDAZOLAM HYDROCHLORIDE
     Route: 065
     Dates: start: 20250106
  23. MYCAMINE [Suspect]
     Active Substance: MICAFUNGIN SODIUM
     Indication: Pneumonia pneumococcal
     Route: 065
     Dates: start: 20250113
  24. MYCAMINE [Suspect]
     Active Substance: MICAFUNGIN SODIUM
     Dosage: 100 MILLIGRAM, QD
     Route: 042
     Dates: start: 20250103, end: 20250104
  25. ACUPAN [Suspect]
     Active Substance: NEFOPAM HYDROCHLORIDE
     Indication: Pain
     Dosage: 100 MILLIGRAM, QD
     Route: 042
     Dates: start: 20241231, end: 20250101
  26. INSULIN HUMAN [Suspect]
     Active Substance: INSULIN HUMAN
     Indication: Type 2 diabetes mellitus
     Route: 042
     Dates: start: 20241230
  27. AMIODARONE [Concomitant]
     Active Substance: AMIODARONE
     Dosage: 1 DOSAGE FORM, QD
  28. ALBUTEROL SULFATE [Concomitant]
     Active Substance: ALBUTEROL SULFATE
  29. REPAGLINIDE [Concomitant]
     Active Substance: REPAGLINIDE
     Dosage: 1 DOSAGE FORM, QD
  30. INNOVAIR [Concomitant]
     Active Substance: BECLOMETHASONE DIPROPIONATE\FORMOTEROL
  31. BISOPROLOL [Concomitant]
     Active Substance: BISOPROLOL
     Dosage: 1 DOSAGE FORM, QD
  32. BENSERAZIDE HYDROCHLORIDE\LEVODOPA [Concomitant]
     Active Substance: BENSERAZIDE HYDROCHLORIDE\LEVODOPA
  33. JANUMET [Concomitant]
     Active Substance: METFORMIN HYDROCHLORIDE\SITAGLIPTIN PHOSPHATE
  34. SPIRIVA [Concomitant]
     Active Substance: TIOTROPIUM BROMIDE MONOHYDRATE
     Dosage: 2 DOSAGE FORM, QD
  35. APIXABAN [Concomitant]
     Active Substance: APIXABAN

REACTIONS (10)
  - Anti factor V antibody [Not Recovered/Not Resolved]
  - Shock haemorrhagic [Recovering/Resolving]
  - Intra-abdominal haemorrhage [Unknown]
  - Hypoxia [Unknown]
  - Hepatic failure [Unknown]
  - Cell death [Unknown]
  - Benign recurrent intrahepatic cholestasis [Unknown]
  - Hypoglycaemia [Unknown]
  - Coagulopathy [Unknown]
  - Device related infection [Unknown]

NARRATIVE: CASE EVENT DATE: 20250107
